FAERS Safety Report 18283553 (Version 1)
Quarter: 2020Q3

REPORT INFORMATION
  Report Type: Spontaneous
  Country: US (occurrence: US)
  Receive Date: 20200918
  Receipt Date: 20200918
  Transmission Date: 20201103
  Serious: Yes (Hospitalization)
  Sender: FDA-Public Use
  Company Number: US-FERRINGPH-2020FE06279

PATIENT
  Sex: Female

DRUGS (1)
  1. STIMATE [Suspect]
     Active Substance: DESMOPRESSIN ACETATE
     Indication: VON WILLEBRAND^S DISEASE
     Dosage: 1 DOSE IN THE AM AND 1 DOSE IN THE EVENING
     Route: 065
     Dates: start: 20191231, end: 20191231

REACTIONS (6)
  - Heart rate increased [Unknown]
  - Seizure [Unknown]
  - Out of specification product use [Not Recovered/Not Resolved]
  - Tremor [Unknown]
  - Heart injury [Not Recovered/Not Resolved]
  - Recalled product administered [Not Recovered/Not Resolved]

NARRATIVE: CASE EVENT DATE: 202001
